FAERS Safety Report 10145729 (Version 2)
Quarter: 2014Q2

REPORT INFORMATION
  Report Type: Report from Study
  Country: BR (occurrence: BR)
  Receive Date: 20140501
  Receipt Date: 20140528
  Transmission Date: 20141212
  Serious: Yes (Hospitalization, Other)
  Sender: FDA-Public Use
  Company Number: PHHY2014BR051878

PATIENT
  Sex: Male

DRUGS (1)
  1. ZOTEON PODHALER [Suspect]
     Dosage: UNK

REACTIONS (2)
  - Cystic fibrosis [Unknown]
  - Staphylococcal infection [Unknown]
